FAERS Safety Report 10906821 (Version 1)
Quarter: 2015Q1

REPORT INFORMATION
  Report Type: Spontaneous
  Country: US (occurrence: None)
  Receive Date: 20150309
  Receipt Date: 20150309
  Transmission Date: 20150721
  Serious: Yes (Hospitalization)
  Sender: FDA-Public Use
  Company Number: None

PATIENT
  Age: 55 Year
  Sex: Female

DRUGS (1)
  1. 3% HYDROGEN PEROXIDE [Suspect]
     Active Substance: HYDROGEN PEROXIDE
     Indication: ACCIDENT
     Dates: start: 20150220

REACTIONS (5)
  - Occupational exposure to product [None]
  - Accidental exposure to product [None]
  - Product container issue [None]
  - Application site burn [None]
  - Chemical injury [None]

NARRATIVE: CASE EVENT DATE: 20150220
